FAERS Safety Report 5867542-3 (Version None)
Quarter: 2008Q3

REPORT INFORMATION
  Report Type: 
  Country: None (occurrence: None)
  Receive Date: 20080902
  Receipt Date: 20080825
  Transmission Date: 20090109
  Serious: Yes (Hospitalization)
  Sender: FDA-Public Use
  Company Number: US-GILEAD-2008-0016514

PATIENT
  Sex: Female

DRUGS (2)
  1. LETAIRIS [Suspect]
     Indication: PULMONARY ARTERIAL HYPERTENSION
  2. LETAIRIS [Suspect]
     Dates: start: 20071201

REACTIONS (3)
  - MALAISE [None]
  - PLEURISY [None]
  - PNEUMONIA [None]
